FAERS Safety Report 8311888-6 (Version None)
Quarter: 2012Q2

REPORT INFORMATION
  Report Type: 
  Country: None (occurrence: None)
  Receive Date: 20120425
  Receipt Date: 20120416
  Transmission Date: 20120825
  Serious: Yes (Life-Threatening, Hospitalization)
  Sender: FDA-Public Use
  Company Number: US-ACTELION-A-NJ2012-63842

PATIENT

DRUGS (3)
  1. SPIRONOLACTONE [Concomitant]
  2. ASPIRIN [Concomitant]
  3. TRACLEER [Suspect]
     Indication: PULMONARY ARTERIAL HYPERTENSION
     Dosage: 125 MG, BID
     Route: 048
     Dates: start: 20091229

REACTIONS (5)
  - DYSPNOEA [None]
  - ACUTE RESPIRATORY FAILURE [None]
  - PULMONARY FIBROSIS [None]
  - PSEUDOMONAS BRONCHITIS [None]
  - LUNG NEOPLASM [None]
